FAERS Safety Report 8296705-5 (Version None)
Quarter: 2012Q2

REPORT INFORMATION
  Report Type: 
  Country: None (occurrence: None)
  Receive Date: 20120418
  Receipt Date: 20120403
  Transmission Date: 20120825
  Serious: Yes (Hospitalization)
  Sender: FDA-Public Use
  Company Number: DK-BAXTER-2011BH037468

PATIENT
  Sex: Female
  Weight: 93.8 kg

DRUGS (7)
  1. THALIDOMIDE [Suspect]
     Indication: MULTIPLE MYELOMA
     Dosage: 50 MILLIGRAM
     Route: 048
     Dates: start: 20100806
  2. CYCLOPHOSPHAMIDE [Suspect]
     Indication: MULTIPLE MYELOMA
     Dosage: 71.4286 MILLIGRAM
     Route: 048
     Dates: start: 20100806
  3. DEXAMETHASONE [Suspect]
     Dosage: 40 MILLIGRAM
     Route: 048
     Dates: start: 20101028, end: 20101127
  4. CYCLOPHOSPHAMIDE [Suspect]
     Dosage: 71.4286 MILLIGRAM
     Route: 048
     Dates: start: 20101028, end: 20101127
  5. THALIDOMIDE [Suspect]
     Dosage: 50 MILLIGRAM
     Route: 048
     Dates: start: 20101028, end: 20101127
  6. DEXAMETHASONE [Suspect]
     Indication: MULTIPLE MYELOMA
     Dosage: 40 MILLIGRAM
     Route: 048
     Dates: start: 20100806
  7. DEXAMETHASONE [Suspect]
     Dates: start: 20101210

REACTIONS (2)
  - PNEUMONIA [None]
  - MYELOMA RECURRENCE [None]
